FAERS Safety Report 24995880 (Version 2)
Quarter: 2025Q1

REPORT INFORMATION
  Report Type: Report from Study
  Country: US (occurrence: US)
  Receive Date: 20250221
  Receipt Date: 20250228
  Transmission Date: 20250409
  Serious: Yes (Hospitalization)
  Sender: SECURA BIO
  Company Number: US-SECURA BIO, INC.-SECUR-2025-US001795

PATIENT
  Age: 76 Year
  Sex: Male

DRUGS (3)
  1. DUVELISIB [Suspect]
     Active Substance: DUVELISIB
     Indication: T-cell lymphoma
     Dates: start: 20210827, end: 20211015
  2. RUXOLITINIB [Suspect]
     Active Substance: RUXOLITINIB
     Indication: T-cell lymphoma
     Dosage: 20 MILLIGRAM, BID
     Dates: start: 20210827, end: 20211013
  3. PREDNISONE [Concomitant]
     Active Substance: PREDNISONE
     Indication: Product used for unknown indication
     Dates: start: 20211014

REACTIONS (4)
  - Candida infection [Unknown]
  - Pyrexia [Unknown]
  - Platelet count decreased [Unknown]
  - Pyrexia [Unknown]

NARRATIVE: CASE EVENT DATE: 20211014
